FAERS Safety Report 18024358 (Version 3)
Quarter: 2020Q3

REPORT INFORMATION
  Report Type: Other
  Country: CN (occurrence: CN)
  Receive Date: 20200714
  Receipt Date: 20200728
  Transmission Date: 20201103
  Serious: Yes (Other)
  Sender: FDA-Public Use
  Company Number: CN-ROCHE-2612063

PATIENT
  Sex: Male
  Weight: 59 kg

DRUGS (14)
  1. ATEZOLIZUMAB. [Suspect]
     Active Substance: ATEZOLIZUMAB
     Indication: SMALL CELL LUNG CANCER
     Dosage: 15MG/KG
     Route: 042
     Dates: start: 20200513, end: 20200514
  2. TROPISETRON [Concomitant]
     Active Substance: TROPISETRON
     Dates: start: 20200718, end: 20200722
  3. ETOPOSIDE. [Suspect]
     Active Substance: ETOPOSIDE
     Indication: SMALL CELL LUNG CANCER
     Dosage: 100MG/M2
     Route: 042
     Dates: start: 20200513, end: 20200516
  4. ATEZOLIZUMAB. [Suspect]
     Active Substance: ATEZOLIZUMAB
     Dosage: 15 MG/KG
     Route: 042
     Dates: start: 20200718, end: 20200719
  5. ETOPOSIDE. [Suspect]
     Active Substance: ETOPOSIDE
     Route: 042
     Dates: start: 20200718, end: 20200721
  6. CARBOPLATIN. [Suspect]
     Active Substance: CARBOPLATIN
     Dosage: AUC = 3.75
     Route: 042
     Dates: start: 20200718, end: 20200719
  7. ETOPOSIDE. [Suspect]
     Active Substance: ETOPOSIDE
     Route: 042
     Dates: start: 20200603, end: 20200604
  8. CARBOPLATIN. [Suspect]
     Active Substance: CARBOPLATIN
     Dosage: AUC=5
     Route: 042
     Dates: start: 20200624, end: 20200625
  9. ATEZOLIZUMAB. [Suspect]
     Active Substance: ATEZOLIZUMAB
     Dosage: 15MG/KG
     Route: 042
     Dates: start: 20200603, end: 20200604
  10. ETOPOSIDE. [Suspect]
     Active Substance: ETOPOSIDE
     Route: 042
     Dates: start: 20200624, end: 20200627
  11. ATEZOLIZUMAB. [Suspect]
     Active Substance: ATEZOLIZUMAB
     Dosage: 15MG/KG
     Route: 042
     Dates: start: 20200624, end: 20200625
  12. CARBOPLATIN. [Suspect]
     Active Substance: CARBOPLATIN
     Indication: SMALL CELL LUNG CANCER
     Dosage: AUC=5
     Route: 042
     Dates: start: 20200513, end: 20200514
  13. CARBOPLATIN. [Suspect]
     Active Substance: CARBOPLATIN
     Dosage: AUC=5
     Route: 042
     Dates: start: 20200603, end: 20200604
  14. FAMOTIDINE. [Concomitant]
     Active Substance: FAMOTIDINE
     Dates: start: 20200718, end: 20200722

REACTIONS (8)
  - Blood thyroid stimulating hormone increased [Not Recovered/Not Resolved]
  - Neutrophil count decreased [Not Recovered/Not Resolved]
  - Alanine aminotransferase increased [Not Recovered/Not Resolved]
  - Alanine aminotransferase increased [Not Recovered/Not Resolved]
  - Platelet count decreased [Not Recovered/Not Resolved]
  - Alanine aminotransferase increased [Not Recovered/Not Resolved]
  - Haemoglobin decreased [Not Recovered/Not Resolved]
  - White blood cell count decreased [Not Recovered/Not Resolved]

NARRATIVE: CASE EVENT DATE: 20200527
